FAERS Safety Report 9130952 (Version 3)
Quarter: 2015Q2

REPORT INFORMATION
  Report Type: Report from Study
  Country: EE (occurrence: EE)
  Receive Date: 20130301
  Receipt Date: 20150402
  Transmission Date: 20150821
  Serious: Yes (Death, Life-Threatening, Hospitalization)
  Sender: FDA-Public Use
  Company Number: EE-MILLENNIUM PHARMACEUTICALS, INC.-2013-01190

PATIENT

DRUGS (11)
  1. PAMIDRONATE [Concomitant]
     Active Substance: PAMIDRONATE DISODIUM
     Dosage: UNK
     Dates: start: 20120928
  2. DIFLUCAN [Concomitant]
     Active Substance: FLUCONAZOLE
     Dosage: UNK
     Dates: start: 20120930, end: 201210
  3. DEXAMETHASONE. [Concomitant]
     Active Substance: DEXAMETHASONE
     Dosage: UNK
     Dates: start: 20120925, end: 20121006
  4. CANCIDAS                           /01527901/ [Concomitant]
     Dosage: UNK
     Dates: start: 20121016, end: 201210
  5. MERONEM                            /01250501/ [Concomitant]
     Dosage: UNK
     Dates: start: 20121016, end: 201210
  6. ONDANSETRON [Concomitant]
     Active Substance: ONDANSETRON
     Dosage: UNK
     Dates: start: 20120925, end: 20121006
  7. TAZOCIN [Concomitant]
     Active Substance: PIPERACILLIN SODIUM\TAZOBACTAM SODIUM
     Dosage: UNK
     Dates: start: 20121011, end: 20121014
  8. FORTUM                             /00559701/ [Concomitant]
     Active Substance: CEFTAZIDIME
     Dosage: UNK
     Dates: start: 20121014, end: 201210
  9. AMIKACIN [Concomitant]
     Active Substance: AMIKACIN
     Dosage: UNK
     Dates: start: 20121014, end: 201210
  10. ZINACEF [Concomitant]
     Active Substance: CEFUROXIME SODIUM
     Dosage: UNK
     Dates: start: 20120918, end: 20120928
  11. VELCADE [Suspect]
     Active Substance: BORTEZOMIB
     Indication: PLASMA CELL MYELOMA
     Dosage: UNK
     Route: 065
     Dates: start: 20120925, end: 20121006

REACTIONS (3)
  - Candida pneumonia [Unknown]
  - Atrial flutter [Fatal]
  - Atrial fibrillation [Fatal]

NARRATIVE: CASE EVENT DATE: 20121023
